FAERS Safety Report 5237870-3 (Version None)
Quarter: 2007Q1

REPORT INFORMATION
  Report Type: 
  Country: None (occurrence: None)
  Receive Date: 20070214
  Receipt Date: 20070206
  Transmission Date: 20070707
  Serious: Yes (Other)
  Sender: FDA-Public Use
  Company Number: US-BRISTOL-MYERS SQUIBB COMPANY-13671532

PATIENT
  Age: 60 Year
  Sex: Male

DRUGS (4)
  1. METOPROLOL TARTRATE [Suspect]
  2. VALSARTAN [Concomitant]
  3. HYDROCHLOROTHIAZIDE [Concomitant]
  4. AMLODIPINE [Concomitant]

REACTIONS (3)
  - ARRHYTHMIA [None]
  - PRESYNCOPE [None]
  - SYNCOPE [None]
